FAERS Safety Report 18155117 (Version 1)
Quarter: 2020Q3

REPORT INFORMATION
  Report Type: Spontaneous
  Country: US (occurrence: US)
  Receive Date: 20200817
  Receipt Date: 20200817
  Transmission Date: 20201103
  Serious: Yes (Hospitalization)
  Sender: FDA-Public Use
  Company Number: US-GW PHARMA-202008USGW02782

PATIENT

DRUGS (1)
  1. EPIDIOLEX [Suspect]
     Active Substance: CANNABIDIOL
     Indication: PRODUCT USED FOR UNKNOWN INDICATION
     Dosage: 2.38 MG/KG, 250 MILLIGRAM, QD
     Route: 048
     Dates: start: 20190502

REACTIONS (1)
  - Back injury [Not Recovered/Not Resolved]

NARRATIVE: CASE EVENT DATE: 20200718
